FAERS Safety Report 5310585-9 (Version None)
Quarter: 2007Q1

REPORT INFORMATION
  Report Type: 
  Country: None (occurrence: None)
  Receive Date: 20070201
  Receipt Date: 20061025
  Transmission Date: 20070707
  Serious: No
  Sender: FDA-Public Use
  Company Number: 258187

PATIENT
  Age: 58 Year
  Sex: Female
  Weight: 56.7 kg

DRUGS (8)
  1. LEVEMIR [Suspect]
     Indication: DIABETES MELLITUS INSULIN-DEPENDENT
     Dosage: 23 IU, QD, SUBCUTANEOUS
     Route: 058
     Dates: start: 20060401
  2. NOVOLOG [Concomitant]
  3. COREG [Concomitant]
  4. ZESTRIL [Concomitant]
  5. PLAVIX [Concomitant]
  6. LEVOTHROID [Concomitant]
  7. ASPIRIN [Concomitant]
  8. IRON (IRON) [Concomitant]

REACTIONS (1)
  - BLOOD GLUCOSE INCREASED [None]
